FAERS Safety Report 14206559 (Version 2)
Quarter: 2017Q4

REPORT INFORMATION
  Report Type: Spontaneous
  Country: US (occurrence: US)
  Receive Date: 20171120
  Receipt Date: 20171214
  Transmission Date: 20180321
  Serious: Yes (Other)
  Sender: FDA-Public Use
  Company Number: US-009507513-1711USA003880

PATIENT
  Sex: Female
  Weight: 112.93 kg

DRUGS (1)
  1. BELSOMRA [Suspect]
     Active Substance: SUVOREXANT
     Indication: INSOMNIA
     Dosage: 20 MG, EVERY BEDTIME (QHS); TRIED FOR TWO NIGHTS
     Route: 048

REACTIONS (1)
  - Cerebrovascular accident [Recovering/Resolving]
